FAERS Safety Report 8539081-2 (Version None)
Quarter: 2012Q3

REPORT INFORMATION
  Report Type: 
  Country: None (occurrence: None)
  Receive Date: 20120726
  Receipt Date: 20120724
  Transmission Date: 20120928
  Serious: Yes (Death, Hospitalization, Other)
  Sender: FDA-Public Use
  Company Number: PHHY2012MX063970

PATIENT
  Sex: Female

DRUGS (2)
  1. ZOLEDRONOC ACID [Suspect]
     Indication: OSTEOPOROSIS
     Dosage: 5 MG / 100 ML ONCE BY YEAR
     Route: 042
     Dates: start: 20090801
  2. EPARMEX [Concomitant]

REACTIONS (4)
  - LIVER DISORDER [None]
  - HAEMATEMESIS [None]
  - MYOCARDIAL INFARCTION [None]
  - HEPATIC CIRRHOSIS [None]
